FAERS Safety Report 6738239-2 (Version None)
Quarter: 2010Q2

REPORT INFORMATION
  Report Type: 
  Country: None (occurrence: None)
  Receive Date: 20100524
  Receipt Date: 20100513
  Transmission Date: 20101027
  Serious: Yes (Hospitalization)
  Sender: FDA-Public Use
  Company Number: A0796451A

PATIENT
  Sex: Female

DRUGS (1)
  1. AVANDIA [Suspect]
     Indication: DIABETES MELLITUS
     Dosage: 4MG TWICE PER DAY
     Route: 065
     Dates: start: 20000101, end: 20070301

REACTIONS (4)
  - AMNESIA [None]
  - ASTHENIA [None]
  - CARDIOVASCULAR DISORDER [None]
  - TRANSIENT ISCHAEMIC ATTACK [None]
